FAERS Safety Report 8167464-1 (Version None)
Quarter: 2012Q1

REPORT INFORMATION
  Report Type: 
  Country: None (occurrence: None)
  Receive Date: 20120227
  Receipt Date: 20120221
  Transmission Date: 20120608
  Serious: Yes (Disabling)
  Sender: FDA-Public Use
  Company Number: US-PFIZER INC-2012047915

PATIENT
  Sex: Female

DRUGS (4)
  1. CHANTIX [Suspect]
     Dosage: 0.5 MG, 1X/DAY
  2. CHANTIX [Suspect]
     Dosage: 1 MG, 2X/DAY
  3. CHANTIX [Suspect]
     Dosage: 0.5 MG, 2X/DAY
  4. LIPITOR [Suspect]
     Dosage: 80 MG, 1X/DAY

REACTIONS (1)
  - NERVOUS SYSTEM DISORDER [None]
